FAERS Safety Report 6230059-0 (Version None)
Quarter: 2009Q2

REPORT INFORMATION
  Report Type: 
  Country: None (occurrence: None)
  Receive Date: 20090615
  Receipt Date: 20090527
  Transmission Date: 20091009
  Serious: Yes (Life-Threatening, Hospitalization)
  Sender: FDA-Public Use
  Company Number: DE-GENENTECH-283473

PATIENT
  Sex: Female

DRUGS (6)
  1. BEVACIZUMAB [Suspect]
     Indication: OVARIAN EPITHELIAL CANCER
     Dosage: 360 MG, UNK
     Route: 042
     Dates: start: 20080908
  2. BEVACIZUMAB [Suspect]
     Dosage: 442.5 MG, UNK
     Route: 042
  3. CARBOPLATIN [Suspect]
     Indication: OVARIAN EPITHELIAL CANCER
     Dosage: 400.7 MG, UNK
     Route: 042
     Dates: start: 20080908
  4. CARBOPLATIN [Suspect]
     Dosage: 455.85 MG, UNK
     Route: 042
  5. PACLITAXEL [Suspect]
     Indication: OVARIAN EPITHELIAL CANCER
     Dosage: 262.5 MG, UNK
     Route: 042
     Dates: start: 20080908
  6. PACLITAXEL [Suspect]
     Dosage: 280 MG, UNK
     Route: 042

REACTIONS (2)
  - INTESTINAL OBSTRUCTION [None]
  - INTESTINAL PERFORATION [None]
